FAERS Safety Report 5285784-5 (Version None)
Quarter: 2007Q1

REPORT INFORMATION
  Report Type: 
  Country: None (occurrence: None)
  Receive Date: 20070126
  Receipt Date: 20061204
  Transmission Date: 20070707
  Serious: No
  Sender: FDA-Public Use
  Company Number: 2006CT001065

PATIENT
  Age: 74 Year
  Sex: Male
  Weight: 75.7507 kg

DRUGS (10)
  1. VENTAVIS [Suspect]
     Indication: PULMONARY HYPERTENSION
     Dosage: 5 UG;6TO9X/DAY;INH
     Route: 055
     Dates: start: 20061103
  2. ASPIRIN [Suspect]
     Indication: ANTICOAGULANT THERAPY
     Dosage: 81 MG;PO
     Route: 048
  3. WARFARIN SODIUM [Suspect]
     Indication: ANTICOAGULANT THERAPY
  4. TRACLEER [Concomitant]
  5. SILDENAFIL CITRATE [Concomitant]
  6. LASIX [Concomitant]
  7. DIGOXIN [Concomitant]
  8. PREDNISONE [Concomitant]
  9. SYNTHROID [Concomitant]
  10. PRILOSEC [Concomitant]

REACTIONS (1)
  - EPISTAXIS [None]
